FAERS Safety Report 8992246 (Version 2)
Quarter: 2013Q1

REPORT INFORMATION
  Report Type: Spontaneous
  Country: US (occurrence: US)
  Receive Date: 20121231
  Receipt Date: 20130131
  Transmission Date: 20140127
  Serious: Yes (Hospitalization, Other)
  Sender: FDA-Public Use
  Company Number: US-ELI_LILLY_AND_COMPANY-US201207003730

PATIENT
  Sex: Male

DRUGS (17)
  1. FORTEO [Suspect]
     Indication: OSTEOPOROSIS
     Dosage: 20 UG, QD
     Route: 058
  2. FORTEO [Suspect]
     Dosage: 20 UG, QD
     Route: 058
     Dates: start: 20120608
  3. REGLAN [Concomitant]
  4. ATENOLOL [Concomitant]
  5. COZAAR [Concomitant]
  6. B12 [Concomitant]
  7. LASIX [Concomitant]
  8. VITAMIN D [Concomitant]
  9. VICODIN [Concomitant]
  10. LYRICA [Concomitant]
  11. AMLODIPINE [Concomitant]
  12. PREDNISONE [Concomitant]
     Dosage: 5 MG, UNKNOWN
  13. SYNTHROID [Concomitant]
  14. XANAX [Concomitant]
  15. WELLBUTRIN [Concomitant]
  16. PRILOSEC [Concomitant]
  17. FLUOXETINE [Concomitant]

REACTIONS (4)
  - Metastatic malignant melanoma [Not Recovered/Not Resolved]
  - Myalgia [Unknown]
  - Injection site erythema [Unknown]
  - Injection site pain [Unknown]
